FAERS Safety Report 23709832 (Version 1)
Quarter: 2024Q2

REPORT INFORMATION
  Report Type: Spontaneous
  Country: US (occurrence: US)
  Receive Date: 20240405
  Receipt Date: 20240405
  Transmission Date: 20240716
  Serious: Yes (Other)
  Sender: FDA-Public Use
  Company Number: US-BRISTOL-MYERS SQUIBB COMPANY-2024-053307

PATIENT
  Age: 67 Year
  Sex: Male
  Weight: 133.81 kg

DRUGS (1)
  1. REVLIMID [Suspect]
     Active Substance: LENALIDOMIDE
     Indication: Plasma cell myeloma
     Dosage: DAILY FOR 14 DAYS ON, THEN 7 DAYS OFF
     Route: 048

REACTIONS (2)
  - Gallbladder disorder [Recovering/Resolving]
  - Off label use [Unknown]
